FAERS Safety Report 12376190 (Version 1)
Quarter: 2016Q2

REPORT INFORMATION
  Report Type: Spontaneous
  Country: US (occurrence: US)
  Receive Date: 20160517
  Receipt Date: 20160517
  Transmission Date: 20160815
  Serious: No
  Sender: FDA-Public Use
  Company Number: US-IMPAX LABORATORIES, INC-2015-IPXL-00709

PATIENT
  Age: 56 Year
  Sex: Male

DRUGS (4)
  1. FENOFIBRATE. [Suspect]
     Active Substance: FENOFIBRATE
     Indication: HYPERTRIGLYCERIDAEMIA
     Dosage: 200 MG, UNK
     Route: 048
  2. FENOFIBRATE. [Suspect]
     Active Substance: FENOFIBRATE
     Dosage: 160 MG, UNK
     Route: 048
     Dates: start: 20150411, end: 20150614
  3. QUINAPRIL. [Concomitant]
     Active Substance: QUINAPRIL
     Indication: CARDIOMYOPATHY
     Dosage: 20 MG, DAILY
     Route: 065
     Dates: start: 1999
  4. COREG [Concomitant]
     Active Substance: CARVEDILOL
     Indication: CARDIOMYOPATHY
     Dosage: 6.25 MG, 2 /DAY
     Route: 065
     Dates: start: 1999

REACTIONS (1)
  - Arthralgia [Not Recovered/Not Resolved]

NARRATIVE: CASE EVENT DATE: 201504
